FAERS Safety Report 12530992 (Version 2)
Quarter: 2016Q4

REPORT INFORMATION
  Report Type: Spontaneous
  Country: GB (occurrence: GB)
  Receive Date: 20160706
  Receipt Date: 20161111
  Transmission Date: 20170207
  Serious: Yes (Other)
  Sender: FDA-Public Use
  Company Number: GB-BAYER-2016-124975

PATIENT
  Age: 69 Year
  Sex: Male

DRUGS (2)
  1. KOGENATE [Suspect]
     Active Substance: ANTIHEMOPHILIC FACTOR, HUMAN RECOMBINANT
     Indication: PROPHYLAXIS
     Dosage: THREE TIMES WEEKLY
     Dates: start: 201512
  2. KOGENATE [Suspect]
     Active Substance: ANTIHEMOPHILIC FACTOR, HUMAN RECOMBINANT
     Indication: PROPHYLAXIS
     Dosage: ON DEMAND

REACTIONS (2)
  - Inhibiting antibodies positive [None]
  - Haematoma [None]

NARRATIVE: CASE EVENT DATE: 201603
